FAERS Safety Report 17452094 (Version 1)
Quarter: 2020Q1

REPORT INFORMATION
  Report Type: Spontaneous
  Country: US (occurrence: US)
  Receive Date: 20200224
  Receipt Date: 20200224
  Transmission Date: 20200409
  Serious: No
  Sender: FDA-Public Use
  Company Number: US-ASTRAZENECA-2020SE24495

PATIENT
  Age: 19731 Day
  Sex: Male
  Weight: 79.4 kg

DRUGS (5)
  1. RHINOCORT AQUA [Suspect]
     Active Substance: BUDESONIDE
     Indication: RHINITIS ALLERGIC
     Dosage: DAILY
     Route: 045
  2. FLONASE [Concomitant]
     Active Substance: FLUTICASONE PROPIONATE
     Indication: LOCALISED INFECTION
     Dosage: UNKNOWN
     Route: 065
  3. PREDNISONE. [Concomitant]
     Active Substance: PREDNISONE
     Indication: LOCALISED INFECTION
     Dosage: UNKNOWN
     Route: 065
  4. FLONASE [Concomitant]
     Active Substance: FLUTICASONE PROPIONATE
     Indication: RHINITIS ALLERGIC
     Dosage: UNKNOWN
     Route: 065
  5. PREDNISONE. [Concomitant]
     Active Substance: PREDNISONE
     Indication: RHINITIS ALLERGIC
     Dosage: UNKNOWN
     Route: 065

REACTIONS (3)
  - Cataract [Unknown]
  - Rhinitis [Unknown]
  - Sinusitis [Unknown]

NARRATIVE: CASE EVENT DATE: 20200213
